FAERS Safety Report 8510902-2 (Version None)
Quarter: 2012Q2

REPORT INFORMATION
  Report Type: 
  Country: None (occurrence: None)
  Receive Date: 20120406
  Receipt Date: 20111209
  Transmission Date: 20120825
  Serious: Yes (Hospitalization)
  Sender: FDA-Public Use
  Company Number: US-CYPR-2011-000085

PATIENT
  Sex: Female
  Weight: 80.2867 kg

DRUGS (20)
  1. BENADRYL [Concomitant]
  2. NITROGLYCERIN [Concomitant]
  3. LEVALBUTEROL HYDROCHLORIDE [Concomitant]
  4. PROTONIX [Concomitant]
  5. METFORMIN HYDROCHLORIDE [Concomitant]
  6. SIMVASTATIN [Concomitant]
  7. CLOPIDOGREL [Suspect]
     Indication: ANTIPLATELET THERAPY
     Dosage: 75 MG ORAL
     Route: 048
     Dates: start: 20110507, end: 20111121
  8. CLOPIDOGREL [Suspect]
     Indication: ANTIPLATELET THERAPY
     Dosage: 75 MG ORAL
     Route: 048
     Dates: start: 20111121
  9. CLONIDINE [Concomitant]
  10. PAXIL [Concomitant]
  11. LISINOPRIL [Concomitant]
  12. GLYBURIDE [Concomitant]
  13. FUROSEMIDE [Concomitant]
  14. ASPIRIN [Suspect]
     Indication: CORONARY ARTERY DISEASE
     Dosage: 81 MG ORAL, 325 MG ORAL
     Route: 048
     Dates: start: 20100325, end: 20111120
  15. POTASSIUM CHLORIDE [Concomitant]
  16. CYPHER STENT [Concomitant]
  17. ATENOLOL [Concomitant]
  18. PRILOSEC [Concomitant]
  19. AZITHROMYCIN [Concomitant]
  20. ROCEPHIN [Concomitant]

REACTIONS (1)
  - PNEUMONIA [None]
